FAERS Safety Report 14989374 (Version 1)
Quarter: 2018Q2

REPORT INFORMATION
  Report Type: Report from Study
  Country: CN (occurrence: CN)
  Receive Date: 20180608
  Receipt Date: 20180608
  Transmission Date: 20180711
  Serious: Yes (Hospitalization)
  Sender: FDA-Public Use
  Company Number: CN-MYLANLABS-2018M1039151

PATIENT
  Age: 66 Year
  Sex: Female

DRUGS (4)
  1. CARBIDOPA/LEVODOPA [Suspect]
     Active Substance: CARBIDOPA\LEVODOPA
     Indication: PARKINSON^S DISEASE
     Dosage: LEVODOPA/CARBIDOPA 200 MG/50 MG, HALF A PILL EVERY 6 H
     Route: 048
  2. SELEGILINE [Interacting]
     Active Substance: SELEGILINE
     Indication: PARKINSON^S DISEASE
     Dosage: 5 MG, QD
     Route: 065
  3. PIRIBEDIL [Interacting]
     Active Substance: PIRIBEDIL
     Indication: PARKINSON^S DISEASE
     Dosage: 50 MG, Q6H
     Route: 065
  4. SELEGILINE [Interacting]
     Active Substance: SELEGILINE
     Dosage: 5MG TWICE A DAY
     Route: 065

REACTIONS (10)
  - Hallucination, visual [Recovering/Resolving]
  - Insomnia [Recovering/Resolving]
  - Dizziness [Recovering/Resolving]
  - Parkinsonian gait [None]
  - Muscle rigidity [None]
  - Mental impairment [Recovering/Resolving]
  - Bradykinesia [Recovering/Resolving]
  - Musculoskeletal stiffness [None]
  - Drug interaction [Recovering/Resolving]
  - Wrong technique in product usage process [None]
